FAERS Safety Report 25728400 (Version 1)
Quarter: 2025Q3

REPORT INFORMATION
  Report Type: Spontaneous
  Country: CN (occurrence: CN)
  Receive Date: 20250826
  Receipt Date: 20250826
  Transmission Date: 20251020
  Serious: Yes (Other)
  Sender: BOEHRINGER INGELHEIM
  Company Number: CN-BoehringerIngelheim-2025-BI-091410

PATIENT
  Age: 54 Year
  Sex: Male
  Weight: 70.000 kg

DRUGS (1)
  1. LINAGLIPTIN\METFORMIN HYDROCHLORIDE [Suspect]
     Active Substance: LINAGLIPTIN\METFORMIN HYDROCHLORIDE
     Indication: Type 2 diabetes mellitus
     Dates: start: 20250808, end: 20250811

REACTIONS (2)
  - Abdominal pain [Recovering/Resolving]
  - Decreased appetite [Recovering/Resolving]

NARRATIVE: CASE EVENT DATE: 20250810
